FAERS Safety Report 5490421-0 (Version None)
Quarter: 2007Q4

REPORT INFORMATION
  Report Type: 
  Country: None (occurrence: None)
  Receive Date: 20071012
  Receipt Date: 20070817
  Transmission Date: 20080405
  Serious: No
  Sender: FDA-Public Use
  Company Number: 2007US001657

PATIENT
  Weight: 1.3 kg

DRUGS (10)
  1. MYCAMINE [Suspect]
     Indication: DRUG USE FOR UNKNOWN INDICATION
     Dosage: 20 MG, UID/QD, IV NOS
     Route: 042
     Dates: start: 20070504, end: 20070514
  2. FLUCONAZOLE [Concomitant]
  3. DOPAMINE HCL [Concomitant]
  4. DOBUTAMINE (DOBUTAMINE) [Concomitant]
  5. LASIX [Concomitant]
  6. HYDROCORTISONE [Concomitant]
  7. MORPHINE [Concomitant]
  8. LORAZEPAM [Concomitant]
  9. PANCURONIUM [Concomitant]
  10. SOLUTIONS FOR PARENTERAL NUTRITION [Concomitant]

REACTIONS (2)
  - ALOPECIA [None]
  - RENAL FAILURE [None]
